FAERS Safety Report 4602138-2 (Version None)
Quarter: 2005Q1

REPORT INFORMATION
  Report Type: 
  Country: None (occurrence: None)
  Receive Date: 20050131
  Receipt Date: 20041124
  Transmission Date: 20050727
  Serious: No
  Sender: FDA-Public Use
  Company Number: 200417525US

PATIENT
  Age: 44 Year
  Sex: Female

DRUGS (3)
  1. KETEK [Suspect]
     Indication: SINUSITIS
     Dosage: 800 MG QD
     Dates: start: 20040901
  2. PSEUDOEPHEDRINE HYDROCHLORIDE [Concomitant]
  3. IBUPROFEN (ADVIL COLD + SINUS) [Concomitant]

REACTIONS (6)
  - COLOUR BLINDNESS [None]
  - DIPLOPIA [None]
  - DIZZINESS [None]
  - PHOTOPSIA [None]
  - VISION BLURRED [None]
  - VISUAL DISTURBANCE [None]
